FAERS Safety Report 6826203-4 (Version None)
Quarter: 2010Q3

REPORT INFORMATION
  Report Type: 
  Country: None (occurrence: None)
  Receive Date: 20100708
  Receipt Date: 20100708
  Transmission Date: 20110219
  Serious: Yes (Hospitalization)
  Sender: FDA-Public Use
  Company Number: None

PATIENT
  Age: 76 Year
  Sex: Male
  Weight: 64 kg

DRUGS (2)
  1. WARFARIN SODIUM [Suspect]
     Indication: ATRIAL FIBRILLATION
     Dates: start: 20091202, end: 20100609
  2. WARFARIN SODIUM [Suspect]
     Indication: DEEP VEIN THROMBOSIS
     Dates: start: 20091202, end: 20100609

REACTIONS (1)
  - HAEMORRHAGE [None]
